FAERS Safety Report 19423564 (Version 1)
Quarter: 2021Q2

REPORT INFORMATION
  Report Type: Spontaneous
  Country: CL (occurrence: CL)
  Receive Date: 20210616
  Receipt Date: 20210616
  Transmission Date: 20210717
  Serious: Yes (Other)
  Sender: FDA-Public Use
  Company Number: CL-ORGANON-O2106CHL000824

PATIENT
  Age: 56 Year
  Sex: Female

DRUGS (5)
  1. VYTORIN [Suspect]
     Active Substance: EZETIMIBE\SIMVASTATIN
     Indication: HYPERCHOLESTEROLAEMIA
     Dosage: 10/20 (UNITS NOT REPORTED), 3 TIMES A WEEK, TUESDAY, THURSDAY AND SATURDAY
     Route: 048
     Dates: start: 202102
  2. PARACETAMOL [Concomitant]
     Active Substance: ACETAMINOPHEN
     Indication: MUSCULOSKELETAL PAIN
     Dosage: UNK
  3. VYTORIN [Suspect]
     Active Substance: EZETIMIBE\SIMVASTATIN
     Dosage: EVERY DAY (QD)
     Route: 048
     Dates: start: 202102, end: 2021
  4. VYTORIN [Suspect]
     Active Substance: EZETIMIBE\SIMVASTATIN
     Dosage: EVERY DAY (QD)
     Route: 048
     Dates: start: 202105
  5. VYTORIN [Suspect]
     Active Substance: EZETIMIBE\SIMVASTATIN
     Dosage: 10/20 (UNITS NOT REPORTED), 3 TIMES A WEEK, TUESDAY, THURSDAY AND SATURDAY
     Route: 048
     Dates: start: 202105

REACTIONS (3)
  - Eye haemorrhage [Recovered/Resolved]
  - Eye haemorrhage [Unknown]
  - Product prescribing issue [Unknown]

NARRATIVE: CASE EVENT DATE: 2021
